FAERS Safety Report 21630716 (Version 1)
Quarter: 2022Q4

REPORT INFORMATION
  Report Type: Report from Study
  Country: US (occurrence: None)
  Receive Date: 20221123
  Receipt Date: 20221123
  Transmission Date: 20230112
  Serious: Yes (Death, Other)
  Sender: FDA-Public Use
  Company Number: US-Merck Healthcare KGaA-9366649

PATIENT
  Sex: Female

DRUGS (1)
  1. REBIF [Suspect]
     Active Substance: INTERFERON BETA-1A
     Indication: Product used for unknown indication
     Dosage: PREFILLED SYRINGE
     Route: 058
     Dates: start: 20090309

REACTIONS (5)
  - Death [Fatal]
  - Hallucination [Unknown]
  - Pain [Unknown]
  - Asthenia [Unknown]
  - Hypophagia [Unknown]
